FAERS Safety Report 9267289 (Version 1)
Quarter: 2013Q2

REPORT INFORMATION
  Report Type: Spontaneous
  Country: GB (occurrence: GB)
  Receive Date: 20130502
  Receipt Date: 20130502
  Transmission Date: 20140414
  Serious: Yes (Other)
  Sender: FDA-Public Use
  Company Number: GB-TEVA-397339ISR

PATIENT
  Age: 44 Year
  Sex: Female
  Weight: 67 kg

DRUGS (2)
  1. AMITRIPTYLINE [Suspect]
     Indication: VULVOVAGINAL PAIN
     Dosage: 20 MILLIGRAM DAILY;
     Route: 048
     Dates: start: 20130403, end: 20130406
  2. AMITRIPTYLINE [Suspect]
     Indication: NEURALGIA
     Route: 065

REACTIONS (6)
  - Vulvovaginal pain [Recovered/Resolved]
  - Nightmare [Recovered/Resolved]
  - Bladder disorder [Unknown]
  - Abnormal dreams [Unknown]
  - Pain [Unknown]
  - Drug ineffective [Unknown]
